FAERS Safety Report 20160399 (Version 1)
Quarter: 2021Q4

REPORT INFORMATION
  Report Type: Spontaneous
  Country: US (occurrence: US)
  Receive Date: 20211208
  Receipt Date: 20211208
  Transmission Date: 20220303
  Serious: Yes (Death, Hospitalization, Other)
  Sender: FDA-Public Use
  Company Number: US-ASTELLAS-2021US038101

PATIENT
  Age: 93 Year
  Sex: Male

DRUGS (1)
  1. XTANDI [Suspect]
     Active Substance: ENZALUTAMIDE
     Indication: Prostate cancer
     Dosage: 160 MG, UNKNOWN FREQ. (4 X 40MG)
     Route: 048

REACTIONS (7)
  - Death [Fatal]
  - Fall [Recovered/Resolved]
  - Lower limb fracture [Recovered/Resolved]
  - Dizziness [Recovered/Resolved]
  - Product taste abnormal [Unknown]
  - Product use complaint [Unknown]
  - Product physical issue [Unknown]

NARRATIVE: CASE EVENT DATE: 20211001
